FAERS Safety Report 9156330 (Version 2)
Quarter: 2013Q3

REPORT INFORMATION
  Report Type: Report from Study
  Country: JP (occurrence: JP)
  Receive Date: 20130312
  Receipt Date: 20130827
  Transmission Date: 20140515
  Serious: Yes (Hospitalization)
  Sender: FDA-Public Use
  Company Number: JP-009507513-1303JPN004492

PATIENT
  Age: 87 Year
  Sex: Female
  Weight: 63 kg

DRUGS (15)
  1. REFLEX [Suspect]
     Indication: DEPRESSION
     Dosage: 7.5 MG, QD
     Route: 048
     Dates: start: 20120209, end: 20120214
  2. REFLEX [Suspect]
     Dosage: 15 MG, QD
     Route: 048
     Dates: start: 20120215, end: 20120217
  3. REFLEX [Suspect]
     Dosage: 7.5 MG, QD
     Route: 048
     Dates: start: 20120218, end: 20120308
  4. REFLEX [Suspect]
     Dosage: 30 MG, QD
     Route: 048
     Dates: start: 20120309, end: 20120417
  5. REFLEX [Suspect]
     Dosage: 45 MG, QD
     Route: 048
     Dates: start: 20120418
  6. GLIMEPRID [Concomitant]
     Indication: DIABETIC COMPLICATION
     Dosage: 0.5 MG
     Route: 048
     Dates: start: 20120309
  7. INSULIN ASPART [Concomitant]
     Indication: DIABETIC COMPLICATION
     Dosage: 4 U
     Dates: start: 20120210
  8. NU-LOTAN TABLETS 25MG [Concomitant]
     Indication: DISEASE COMPLICATION
     Dosage: 25 MG
     Route: 048
     Dates: end: 20120301
  9. LASIX (FUROSEMIDE) [Concomitant]
     Indication: DISEASE COMPLICATION
     Dosage: 20 MG
     Route: 048
     Dates: end: 20120301
  10. ALDACTONE A [Concomitant]
     Indication: DISEASE COMPLICATION
     Dosage: 50 MG
     Route: 048
     Dates: end: 20120502
  11. KANZOTO [Concomitant]
     Indication: DISEASE COMPLICATION
     Dosage: 5 G
     Route: 048
     Dates: end: 20120301
  12. PURSENNID (SENNOSIDES) [Concomitant]
     Indication: DISEASE COMPLICATION
     Dosage: 24 MG
     Route: 048
     Dates: end: 20120502
  13. ESTAZOLAM [Concomitant]
     Indication: DEPRESSION
     Dosage: UNK
     Route: 048
     Dates: end: 20130201
  14. ETIZOLAM [Concomitant]
     Indication: DEPRESSION
     Dosage: UNK
     Route: 048
     Dates: end: 20130201
  15. DIAZEPAM [Concomitant]
     Indication: DEPRESSION
     Dosage: UNK
     Dates: end: 20130201

REACTIONS (2)
  - Transient ischaemic attack [Recovered/Resolved]
  - Erysipelas [Recovered/Resolved]
